FAERS Safety Report 24629879 (Version 11)
Quarter: 2025Q3

REPORT INFORMATION
  Report Type: Report from Study
  Country: GB (occurrence: GB)
  Receive Date: 20241118
  Receipt Date: 20250902
  Transmission Date: 20251020
  Serious: Yes (Other)
  Sender: NOVARTIS
  Company Number: GB-002147023-NVSC2024GB087693

PATIENT
  Sex: Female

DRUGS (4)
  1. COSENTYX [Suspect]
     Active Substance: SECUKINUMAB
     Indication: Psoriasis
     Dosage: 300 MG, QMO (1 PRE FILLED DISPOSABLE INJECTION)
     Route: 058
  2. COSENTYX [Suspect]
     Active Substance: SECUKINUMAB
     Route: 065
     Dates: start: 20241012
  3. COSENTYX [Suspect]
     Active Substance: SECUKINUMAB
     Route: 065
     Dates: start: 20241113
  4. COSENTYX [Suspect]
     Active Substance: SECUKINUMAB
     Dosage: 300 MG, QMO
     Route: 058

REACTIONS (21)
  - Lower respiratory tract infection [Unknown]
  - Nasopharyngitis [Not Recovered/Not Resolved]
  - Upper respiratory tract infection [Unknown]
  - Skin infection [Recovering/Resolving]
  - Helicobacter infection [Recovering/Resolving]
  - Urinary tract infection [Recovering/Resolving]
  - Influenza [Unknown]
  - Malaise [Unknown]
  - Foot fracture [Not Recovered/Not Resolved]
  - Accident [Unknown]
  - Rib fracture [Unknown]
  - Memory impairment [Unknown]
  - Ankle fracture [Unknown]
  - Device defective [Unknown]
  - Needle issue [Unknown]
  - Device malfunction [Unknown]
  - Device leakage [Not Recovered/Not Resolved]
  - Drug dose omission by device [Unknown]
  - Incorrect dose administered [Unknown]
  - Accidental exposure to product [Unknown]
  - Product use issue [Unknown]
